FAERS Safety Report 4883761-7 (Version None)
Quarter: 2006Q1

REPORT INFORMATION
  Report Type: 
  Country: None (occurrence: None)
  Receive Date: 20060113
  Receipt Date: 20051229
  Transmission Date: 20060701
  Serious: Yes (Hospitalization)
  Sender: FDA-Public Use
  Company Number: 6019530

PATIENT
  Age: 52 Year
  Sex: Female

DRUGS (7)
  1. LEVOTHYROXINE SODIUM [Suspect]
     Indication: HYPOTHYROIDISM
     Dosage: 75 MCG (75 MCG, 1 D), ORAL
     Route: 048
  2. IMOVANE (TABLET) (ZOPICLONE) [Suspect]
     Indication: SLEEP DISORDER
     Dosage: 7.5 MG (7.5 MG, 1 D), ORAL
     Route: 048
  3. AUGMENTIN '125' [Suspect]
     Indication: HYPOTHYROIDISM
     Dosage: 3 GM (3 GM, 1 D), ORAL
     Route: 048
     Dates: start: 20051001, end: 20051027
  4. OFLOCET (TABLET) (OFLOXACIN) [Suspect]
     Indication: HYPOTHYROIDISM
     Dates: start: 20051019, end: 20051027
  5. SERETIDE (FLUTICASONE PROPIONATE, SALMETEROL XINAFOATE) [Suspect]
     Indication: ASTHMA
     Dosage: 2 DOSAGE FORMS (2 DOSAGE FORMS, 2 IN 1 D), RESPIRATORY (INHALATION)
     Route: 055
  6. NOVONORM (TABLET) (REPAGLINIDE) [Suspect]
     Indication: DIABETES MELLITUS
     Dosage: 1 MG (1 MG, 1 D), ORAL
     Route: 048
  7. PARACETAMOL (TABLET) (PARACETAMOL) [Suspect]
     Dosage: ORAL
     Route: 048
     Dates: start: 20051030, end: 20051104

REACTIONS (3)
  - ACUTE GENERALISED EXANTHEMATOUS PUSTULOSIS [None]
  - ACUTE RESPIRATORY FAILURE [None]
  - SLEEP DISORDER [None]
